FAERS Safety Report 5058083-4 (Version None)
Quarter: 2006Q3

REPORT INFORMATION
  Report Type: 
  Country: None (occurrence: None)
  Receive Date: 20060721
  Receipt Date: 20060608
  Transmission Date: 20061208
  Serious: Yes (Hospitalization)
  Sender: FDA-Public Use
  Company Number: FR-AMGEN-UK182358

PATIENT
  Sex: Male

DRUGS (14)
  1. MIMPARA [Suspect]
     Indication: DRUG USE FOR UNKNOWN INDICATION
     Route: 048
     Dates: start: 20050302
  2. KAYEXALATE [Concomitant]
     Route: 065
  3. DAFALGAN [Concomitant]
     Route: 065
  4. ASPIRIN [Concomitant]
     Route: 065
     Dates: start: 19991210
  5. ZANTAC [Concomitant]
     Route: 065
     Dates: start: 20020621, end: 20060206
  6. ACEBUTOLOL [Concomitant]
     Route: 048
     Dates: start: 19991201
  7. TARDYFERON [Concomitant]
     Route: 048
  8. PYOSTACINE [Concomitant]
     Route: 048
     Dates: start: 20050124
  9. ALFACALCIDOL [Concomitant]
     Route: 065
     Dates: start: 20050411
  10. CALCIUM CARBONATE [Concomitant]
     Route: 048
     Dates: start: 20050411
  11. PLAVIX [Concomitant]
     Route: 065
  12. APROVEL [Concomitant]
     Route: 065
  13. FENOFIBRATE [Concomitant]
     Route: 065
  14. GLYCERYL TRINITRATE [Concomitant]
     Route: 062

REACTIONS (1)
  - ANGINA PECTORIS [None]
